FAERS Safety Report 5187798-2 (Version None)
Quarter: 2006Q4

REPORT INFORMATION
  Report Type: 
  Country: None (occurrence: None)
  Receive Date: 20061212
  Receipt Date: 20061204
  Transmission Date: 20070319
  Serious: Yes (Other)
  Sender: FDA-Public Use
  Company Number: 2006149316

PATIENT
  Age: 72 Year
  Sex: Female
  Weight: 105.2345 kg

DRUGS (4)
  1. BEN-GAY ULTRA (MENTHOL, CAMPHOR, METHYL SALICYLATE) [Suspect]
     Indication: ARTHRALGIA
     Dosage: SIZE OF ^A QUARTER^ AMOUNT
     Dates: start: 20061127, end: 20061202
  2. CALCIUM DE ^STADA^ (CALCIUM, COLECALCIFEROL) [Concomitant]
  3. LEVOTHYROXINE SODIUM [Concomitant]
  4. WARFARIN SODIUM [Concomitant]

REACTIONS (4)
  - ABASIA [None]
  - ERYTHEMA [None]
  - FEELING HOT [None]
  - SKIN DISCOLOURATION [None]
